FAERS Safety Report 7220888-9 (Version None)
Quarter: 2011Q1

REPORT INFORMATION
  Report Type: 
  Country: None (occurrence: None)
  Receive Date: 20110112
  Receipt Date: 20110103
  Transmission Date: 20110831
  Serious: Yes (Hospitalization)
  Sender: FDA-Public Use
  Company Number: FR-PFIZER INC-2011000141

PATIENT
  Age: 63 Year
  Sex: Female
  Weight: 71 kg

DRUGS (6)
  1. AVASTIN [Suspect]
     Indication: GLIOBLASTOMA
     Dosage: 712.5 MG, UNK
     Route: 042
     Dates: start: 20101011
  2. MEDROL [Concomitant]
     Indication: OEDEMA
     Dosage: UNK
     Route: 048
     Dates: start: 20100801
  3. NEXIUM [Concomitant]
     Indication: PROPHYLAXIS
     Dosage: UNK
     Route: 048
     Dates: start: 20100916
  4. DEPAKENE [Concomitant]
     Indication: EPILEPSY
     Dosage: UNK
     Route: 048
     Dates: start: 20101109
  5. PROPRANOLOL [Concomitant]
     Indication: TACHYCARDIA
     Dosage: UNK
     Route: 048
     Dates: start: 20000101
  6. CAMPTO [Suspect]
     Indication: GLIOBLASTOMA
     Dosage: 210 MG, UNK
     Route: 042
     Dates: start: 20101011

REACTIONS (1)
  - PARTIAL SEIZURES [None]
